FAERS Safety Report 10400167 (Version 3)
Quarter: 2015Q2

REPORT INFORMATION
  Report Type: Spontaneous
  Country: US (occurrence: US)
  Receive Date: 20140821
  Receipt Date: 20150417
  Transmission Date: 20150821
  Serious: Yes (Other)
  Sender: FDA-Public Use
  Company Number: US-BAYER-2014-125332

PATIENT
  Age: 33 Year
  Sex: Female
  Weight: 81.63 kg

DRUGS (9)
  1. WELLBUTRIN [Concomitant]
     Active Substance: BUPROPION HYDROCHLORIDE
     Dosage: 100 MG, UNK
     Route: 048
  2. VISTARIL [Concomitant]
     Active Substance: HYDROXYZINE PAMOATE
     Indication: ANXIETY
     Dosage: 25 MG, PRN
     Route: 048
  3. LAMICTAL [Concomitant]
     Active Substance: LAMOTRIGINE
     Dosage: 25 MG, UNK
     Route: 048
  4. MIRENA [Suspect]
     Active Substance: LEVONORGESTREL
     Indication: CONTRACEPTION
     Dosage: 20 MCG/24HR, CONT
     Route: 015
     Dates: start: 201010, end: 20130211
  5. TRAZODONE [Concomitant]
     Active Substance: TRAZODONE HYDROCHLORIDE
     Dosage: 50 MG, UNK
     Route: 048
  6. SEROQUEL [Concomitant]
     Active Substance: QUETIAPINE FUMARATE
     Dosage: 25 MG, UNK
     Route: 048
  7. CELEXA [Concomitant]
     Active Substance: CITALOPRAM HYDROBROMIDE
     Dosage: 20 MG, UNK
     Route: 048
  8. METHADONE [Concomitant]
     Active Substance: METHADONE HYDROCHLORIDE
     Indication: DRUG DEPENDENCE
     Dosage: 45 MG, EVERY DAY
     Route: 048
     Dates: start: 201007
  9. ABILIFY [Concomitant]
     Active Substance: ARIPIPRAZOLE
     Dosage: 10 MG, UNK
     Route: 048

REACTIONS (8)
  - Flank pain [None]
  - Anxiety [None]
  - Scar [None]
  - Uterine perforation [None]
  - Injury [None]
  - Emotional distress [None]
  - Device issue [None]
  - Abdominal pain lower [None]

NARRATIVE: CASE EVENT DATE: 2013
